FAERS Safety Report 21097321 (Version 3)
Quarter: 2022Q3

REPORT INFORMATION
  Report Type: Spontaneous
  Country: US (occurrence: US)
  Receive Date: 20220719
  Receipt Date: 20220722
  Transmission Date: 20221027
  Serious: No
  Sender: FDA-Public Use
  Company Number: US-JNJFOC-20220659747

PATIENT
  Age: 61 Year
  Sex: Female

DRUGS (1)
  1. TREMFYA [Suspect]
     Active Substance: GUSELKUMAB
     Indication: Psoriasis
     Route: 058
     Dates: start: 202201

REACTIONS (3)
  - Needle issue [Unknown]
  - Product dose omission issue [Unknown]
  - Device issue [Unknown]

NARRATIVE: CASE EVENT DATE: 20220627
